FAERS Safety Report 20338793 (Version 3)
Quarter: 2022Q1

REPORT INFORMATION
  Report Type: Spontaneous
  Country: JP (occurrence: JP)
  Receive Date: 20220116
  Receipt Date: 20220214
  Transmission Date: 20220423
  Serious: Yes (Other)
  Sender: FDA-Public Use
  Company Number: JP-TAKEDA-2022TJP006307

PATIENT
  Age: 22 Month
  Sex: Male

DRUGS (5)
  1. MIDAZOLAM HYDROCHLORIDE [Suspect]
     Active Substance: MIDAZOLAM HYDROCHLORIDE
     Indication: Seizure
     Dosage: 2.5 MILLIGRAM, PRN
     Route: 002
     Dates: start: 20220107, end: 20220107
  2. MIDAZOLAM HYDROCHLORIDE [Suspect]
     Active Substance: MIDAZOLAM HYDROCHLORIDE
     Indication: Status epilepticus
  3. DIAZEPAM [Suspect]
     Active Substance: DIAZEPAM
     Indication: Seizure
     Dosage: 4 MILLIGRAM
     Route: 054
     Dates: start: 20220107, end: 20220107
  4. MIDAZOLAM [Concomitant]
     Active Substance: MIDAZOLAM
     Indication: Seizure
     Dosage: 1 MILLIGRAM
     Route: 042
     Dates: start: 20220107
  5. FOSPHENYTOIN SODIUM [Concomitant]
     Active Substance: FOSPHENYTOIN SODIUM
     Indication: Seizure
     Dosage: 75 MILLIGRAM
     Route: 041
     Dates: start: 20220107

REACTIONS (3)
  - Respiratory depression [Recovered/Resolved]
  - Exanthema subitum [Recovered/Resolved]
  - Drug interaction [Unknown]

NARRATIVE: CASE EVENT DATE: 20220107
